FAERS Safety Report 14782437 (Version 1)
Quarter: 2018Q2

REPORT INFORMATION
  Report Type: Spontaneous
  Country: US (occurrence: US)
  Receive Date: 20180420
  Receipt Date: 20180420
  Transmission Date: 20180711
  Serious: No
  Sender: FDA-Public Use
  Company Number: US-PFIZER INC-2018161258

PATIENT

DRUGS (2)
  1. DACOGEN [Concomitant]
     Active Substance: DECITABINE
     Dosage: UNK, ADMINISTER IN THE MORNING AND IN THE AFTERNOON
  2. MYLOTARG [Suspect]
     Active Substance: GEMTUZUMAB OZOGAMICIN
     Indication: ACUTE MYELOID LEUKAEMIA
     Dosage: UNK, DAYS 1, 4 AND 7

REACTIONS (2)
  - Chills [Recovered/Resolved]
  - Body temperature increased [Recovered/Resolved]
